FAERS Safety Report 6662157-1 (Version None)
Quarter: 2010Q1

REPORT INFORMATION
  Report Type: 
  Country: None (occurrence: None)
  Receive Date: 20100331
  Receipt Date: 20100324
  Transmission Date: 20100710
  Serious: Yes (Other)
  Sender: FDA-Public Use
  Company Number: DE-BAXTER-2010BH007950

PATIENT
  Age: 67 Year
  Sex: Female

DRUGS (5)
  1. UROMITEXAN BAXTER [Suspect]
     Indication: CHEMOTHERAPY
     Route: 048
     Dates: start: 20100101, end: 20100301
  2. DEXAMETHASONE [Concomitant]
     Indication: DRUG USE FOR UNKNOWN INDICATION
     Route: 048
  3. METOCLOPRAMIDE [Concomitant]
     Indication: VOMITING
     Route: 048
  4. ONDANSETRON [Concomitant]
     Indication: VOMITING
     Route: 048
  5. NEULASTA [Concomitant]
     Indication: CHEMOTHERAPY
     Route: 058
     Dates: start: 20100201

REACTIONS (2)
  - DYSGEUSIA [None]
  - NAUSEA [None]
